FAERS Safety Report 5721351-4 (Version None)
Quarter: 2008Q2

REPORT INFORMATION
  Report Type: 
  Country: None (occurrence: None)
  Receive Date: 20080429
  Receipt Date: 20080425
  Transmission Date: 20081010
  Serious: Yes (Hospitalization)
  Sender: FDA-Public Use
  Company Number: FR-MERCK-0710FRA00092

PATIENT
  Age: 82 Year
  Sex: Female

DRUGS (8)
  1. FOSAMAX PLUS D [Suspect]
     Indication: OSTEOPOROSIS
     Route: 048
     Dates: start: 20060101, end: 20070901
  2. FOSAMAX PLUS D [Suspect]
     Route: 048
     Dates: start: 20071201
  3. BROMAZEPAM [Concomitant]
     Indication: ANXIETY
     Route: 048
  4. LEVOTHYROXINE SODIUM [Concomitant]
     Route: 048
  5. ATENOLOL [Concomitant]
     Indication: ARRHYTHMIA PROPHYLAXIS
     Route: 048
  6. OMEPRAZOLE [Concomitant]
     Indication: DYSPEPSIA
     Route: 048
  7. FLUINDIONE [Concomitant]
     Route: 048
  8. FOSAMAX [Concomitant]
     Indication: OSTEOPOROSIS
     Route: 048
     Dates: start: 20050101, end: 20060101

REACTIONS (2)
  - GAIT DISTURBANCE [None]
  - VISUAL FIELD DEFECT [None]
